FAERS Safety Report 6028270-7 (Version None)
Quarter: 2009Q1

REPORT INFORMATION
  Report Type: 
  Country: None (occurrence: None)
  Receive Date: 20090102
  Receipt Date: 20081210
  Transmission Date: 20090719
  Serious: Yes (Other)
  Sender: FDA-Public Use
  Company Number: PHHY2008JP30693

PATIENT
  Age: 78 Year
  Sex: Male

DRUGS (2)
  1. VISUDYNE [Suspect]
     Indication: CHOROIDAL NEOVASCULARISATION
     Dates: start: 20070131, end: 20070131
  2. VISUDYNE [Suspect]
     Indication: POLYPOIDAL CHOROIDAL VASCULOPATHY
     Dates: start: 20070131, end: 20070131

REACTIONS (2)
  - RETINAL EXUDATES [None]
  - RETINAL HAEMORRHAGE [None]
